FAERS Safety Report 23689793 (Version 1)
Quarter: 2024Q1

REPORT INFORMATION
  Report Type: Spontaneous
  Country: US (occurrence: US)
  Receive Date: 20240331
  Receipt Date: 20240331
  Transmission Date: 20240409
  Serious: No
  Sender: FDA-Public Use
  Company Number: US-LEO Pharma-368988

PATIENT
  Age: 20 Year

DRUGS (2)
  1. ADBRY [Suspect]
     Active Substance: TRALOKINUMAB-LDRM
     Indication: Dermatitis atopic
  2. RINVOQ [Concomitant]
     Active Substance: UPADACITINIB
     Indication: Dermatitis atopic

REACTIONS (1)
  - Drug ineffective [Unknown]
